FAERS Safety Report 15961624 (Version 1)
Quarter: 2019Q1

REPORT INFORMATION
  Report Type: Report from Study
  Country: US (occurrence: US)
  Receive Date: 20190214
  Receipt Date: 20190214
  Transmission Date: 20190417
  Serious: Yes (Other)
  Sender: FDA-Public Use
  Company Number: US-IPSEN BIOPHARMACEUTICALS, INC.-2018-19997

PATIENT
  Age: 11 Year
  Sex: Male
  Weight: 36 kg

DRUGS (1)
  1. DYSPORT [Suspect]
     Active Substance: ABOBOTULINUMTOXINA
     Indication: MUSCLE SPASTICITY
     Dosage: L,R-M GASTROC-0.65?L,R-LATERAL GASTROC-0.55
     Route: 030
     Dates: start: 20180305, end: 20180305

REACTIONS (2)
  - Pain in extremity [Unknown]
  - Muscle rupture [Not Recovered/Not Resolved]

NARRATIVE: CASE EVENT DATE: 201803
